FAERS Safety Report 13915313 (Version 1)
Quarter: 2017Q3

REPORT INFORMATION
  Report Type: Spontaneous
  Country: US (occurrence: US)
  Receive Date: 20170829
  Receipt Date: 20170829
  Transmission Date: 20171127
  Serious: No
  Sender: FDA-Public Use
  Company Number: US-009507513-1708USA007981

PATIENT
  Age: 55 Year

DRUGS (2)
  1. REMERON SOLTAB [Suspect]
     Active Substance: MIRTAZAPINE
     Dosage: 15 MG, QD
     Route: 048
     Dates: start: 201708
  2. REMERON SOLTAB [Suspect]
     Active Substance: MIRTAZAPINE
     Indication: ANXIETY
     Dosage: 15 MG, BID
     Route: 048
     Dates: start: 20170813, end: 201708

REACTIONS (4)
  - Product use in unapproved indication [Unknown]
  - Migraine with aura [Unknown]
  - Headache [Unknown]
  - Headache [Unknown]

NARRATIVE: CASE EVENT DATE: 201708
